FAERS Safety Report 6898531-8 (Version None)
Quarter: 2010Q3

REPORT INFORMATION
  Report Type: 
  Country: None (occurrence: None)
  Receive Date: 20100802
  Receipt Date: 20071101
  Transmission Date: 20110219
  Serious: Yes (Other)
  Sender: FDA-Public Use
  Company Number: US-PFIZER INC-2007075507

PATIENT
  Sex: Female
  Weight: 214.09 kg

DRUGS (62)
  1. LYRICA [Suspect]
     Indication: DIABETIC NEUROPATHY
     Dates: start: 20070821, end: 20070905
  2. LYRICA [Suspect]
     Indication: PAIN IN EXTREMITY
  3. AMARYL [Suspect]
     Indication: DIABETES MELLITUS
  4. SITAGLIPTIN [Suspect]
     Indication: DIABETES MELLITUS
  5. TRANDOLAPRIL AND VERAPAMIL HYDROCHLORIDE [Suspect]
     Indication: CARDIAC DISORDER
  6. XANAX [Concomitant]
  7. GUAIFENESIN W/DEXTROMETHORPHAN [Concomitant]
  8. BUDESONIDE [Concomitant]
  9. BUSPIRONE HCL [Concomitant]
  10. CHOLESTYRAMINE RESIN [Concomitant]
  11. CHOLESTYRAMINE RESIN [Concomitant]
  12. CLARINEX [Concomitant]
  13. CLARINEX [Concomitant]
  14. CYMBALTA [Concomitant]
  15. CYMBALTA [Concomitant]
  16. FUROSEMIDE [Concomitant]
  17. FUROSEMIDE [Concomitant]
  18. PROMETHAZINE [Concomitant]
  19. PROMETHAZINE [Concomitant]
  20. K-DUR [Concomitant]
  21. K-DUR [Concomitant]
  22. ALL OTHER THERAPEUTIC PRODUCTS [Concomitant]
  23. ALL OTHER THERAPEUTIC PRODUCTS [Concomitant]
  24. PYRIDOXINE HCL [Concomitant]
  25. PYRIDOXINE HCL [Concomitant]
  26. MOBIC [Concomitant]
  27. MOBIC [Concomitant]
  28. PRIMIDONE [Concomitant]
  29. PRIMIDONE [Concomitant]
  30. NEXIUM [Concomitant]
  31. NEXIUM [Concomitant]
  32. OXYBUTYNIN CHLORIDE [Concomitant]
  33. OXYBUTYNIN CHLORIDE [Concomitant]
  34. PERCOCET [Concomitant]
  35. PERCOCET [Concomitant]
  36. ZETIA [Concomitant]
  37. ZETIA [Concomitant]
  38. ZOCOR [Concomitant]
  39. TOPAMAX [Concomitant]
  40. VICODIN [Concomitant]
  41. WARFARIN SODIUM [Concomitant]
  42. NEURONTIN [Concomitant]
  43. TRIOBE [Concomitant]
  44. GUAIFENESIN [Concomitant]
  45. LEVOSALBUTAMOL [Concomitant]
  46. OXYGEN [Concomitant]
  47. TYLENOL [Concomitant]
  48. TUMS [Concomitant]
  49. MYLANTA [Concomitant]
  50. DULCOLAX [Concomitant]
  51. GAS-X [Concomitant]
  52. LOPERAMIDE HYDROCHLORIDE [Concomitant]
  53. GENERAL NUTRIENTS/MINERALS/VITAMINS [Concomitant]
  54. CALCIUM WITH VITAMIN D [Concomitant]
  55. FISH OIL [Concomitant]
  56. GARLIC [Concomitant]
  57. REMIFEMIN [Concomitant]
  58. SOY ISOFLAVONES [Concomitant]
  59. CYANOCOBALAMIN [Concomitant]
  60. CHLOROPHYLLIN SODIUM COPPER COMPLEX [Concomitant]
  61. ASCORBIC ACID [Concomitant]
  62. VITAMIN E [Concomitant]

REACTIONS (4)
  - FATIGUE [None]
  - INSOMNIA [None]
  - VISION BLURRED [None]
  - WEIGHT INCREASED [None]
